FAERS Safety Report 19040870 (Version 6)
Quarter: 2021Q4

REPORT INFORMATION
  Report Type: Other
  Country: JP (occurrence: JP)
  Receive Date: 20210322
  Receipt Date: 20211210
  Transmission Date: 20220303
  Serious: Yes (Hospitalization)
  Sender: FDA-Public Use
  Company Number: JP-CHUGAI-A2021010899ROCHE

PATIENT
  Age: 59 Year
  Sex: Female
  Weight: 67.8 kg

DRUGS (8)
  1. ACTEMRA [Suspect]
     Active Substance: TOCILIZUMAB
     Indication: Still^s disease
     Dosage: DOSAGE IS UNCERTAIN.
     Route: 058
     Dates: start: 202101, end: 202101
  2. ACTEMRA [Suspect]
     Active Substance: TOCILIZUMAB
     Indication: Still^s disease
     Route: 041
     Dates: start: 20210204, end: 20210311
  3. ACTEMRA [Suspect]
     Active Substance: TOCILIZUMAB
     Route: 041
     Dates: start: 201701, end: 201704
  4. PREDONINE [Concomitant]
     Active Substance: PREDNISOLONE
     Dosage: UNK
     Route: 065
     Dates: start: 201604
  5. METHOTREXATE [Concomitant]
     Active Substance: METHOTREXATE
  6. AZATHIOPRINE [Concomitant]
     Active Substance: AZATHIOPRINE
  7. CYCLOSPORINE [Concomitant]
     Active Substance: CYCLOSPORINE
  8. TACROLIMUS [Concomitant]
     Active Substance: TACROLIMUS

REACTIONS (6)
  - Anaphylactic shock [Recovered/Resolved]
  - Dermatitis psoriasiform [Recovering/Resolving]
  - Dermatitis psoriasiform [Unknown]
  - Pustule [Unknown]
  - Off label use [Unknown]
  - Psoriasis [Recovering/Resolving]

NARRATIVE: CASE EVENT DATE: 20170110
